FAERS Safety Report 6094957-3 (Version None)
Quarter: 2009Q1

REPORT INFORMATION
  Report Type: 
  Country: None (occurrence: None)
  Receive Date: 20090227
  Receipt Date: 20090217
  Transmission Date: 20090719
  Serious: Yes (Other)
  Sender: FDA-Public Use
  Company Number: BR-PFIZER INC-2009172762

PATIENT

DRUGS (1)
  1. DEPO-PROVERA [Suspect]
     Indication: CONTRACEPTION
     Dosage: 150 MG, EVERY THREE MONTHS
     Route: 030
     Dates: start: 19890101, end: 20081001

REACTIONS (8)
  - INJECTION SITE ERYTHEMA [None]
  - INJECTION SITE INFECTION [None]
  - INJECTION SITE IRRITATION [None]
  - INJECTION SITE NECROSIS [None]
  - INJECTION SITE PAIN [None]
  - INJECTION SITE ULCER [None]
  - PAIN IN EXTREMITY [None]
  - PRODUCT CONTAMINATION [None]
